FAERS Safety Report 23637027 (Version 1)
Quarter: 2024Q1

REPORT INFORMATION
  Report Type: Spontaneous
  Country: US (occurrence: None)
  Receive Date: 20240315
  Receipt Date: 20240315
  Transmission Date: 20240410
  Serious: Yes (Hospitalization)
  Sender: FDA-Public Use
  Company Number: None

PATIENT
  Age: 49 Year
  Sex: Female

DRUGS (1)
  1. DROXIDOPA [Suspect]
     Active Substance: DROXIDOPA
     Indication: Riley-Day syndrome
     Dosage: 600MG THREE TIMES DAILY ORAL?
     Route: 048
     Dates: start: 202104

REACTIONS (2)
  - Posterior reversible encephalopathy syndrome [None]
  - Incorrect dose administered [None]

NARRATIVE: CASE EVENT DATE: 20240304
